FAERS Safety Report 5406969-0 (Version None)
Quarter: 2007Q3

REPORT INFORMATION
  Report Type: 
  Country: None (occurrence: None)
  Receive Date: 20070803
  Receipt Date: 20070803
  Transmission Date: 20080115
  Serious: Yes (Other)
  Sender: FDA-Public Use
  Company Number: None

PATIENT
  Sex: Female
  Weight: 93.3 kg

DRUGS (1)
  1. CARBOPLATIN [Suspect]
     Dosage: 200ML/HR IV
     Route: 042
     Dates: start: 20070727, end: 20070727

REACTIONS (6)
  - CHEST DISCOMFORT [None]
  - CHILLS [None]
  - INFUSION RELATED REACTION [None]
  - NAUSEA [None]
  - PRURITUS [None]
  - RETCHING [None]
